FAERS Safety Report 7112848-3 (Version None)
Quarter: 2010Q4

REPORT INFORMATION
  Report Type: 
  Country: None (occurrence: None)
  Receive Date: 20101119
  Receipt Date: 20100927
  Transmission Date: 20110411
  Serious: No
  Sender: FDA-Public Use
  Company Number: US-BRISTOL-MYERS SQUIBB COMPANY-15305667

PATIENT
  Age: 43 Year
  Sex: Male
  Weight: 77 kg

DRUGS (4)
  1. AVALIDE [Suspect]
     Dosage: 1 DF = 150/12.5 UNIT NOT MENTIONED.2YRS AGO
  2. AVAPRO [Suspect]
     Dates: start: 20100101
  3. CALCIUM [Concomitant]
  4. SYNTHROID [Concomitant]

REACTIONS (3)
  - BLOOD CALCIUM DECREASED [None]
  - URINARY TRACT DISORDER [None]
  - VERTIGO [None]
